FAERS Safety Report 16667332 (Version 1)
Quarter: 2019Q3

REPORT INFORMATION
  Report Type: Spontaneous
  Country: GB (occurrence: GB)
  Receive Date: 20190805
  Receipt Date: 20190805
  Transmission Date: 20191004
  Serious: Yes (Death, Other)
  Sender: FDA-Public Use
  Company Number: GB-PFIZER INC-2019332430

PATIENT
  Age: 80 Year
  Sex: Male

DRUGS (7)
  1. AMIODARONE HCL [Suspect]
     Active Substance: AMIODARONE HYDROCHLORIDE
     Indication: ATRIAL FIBRILLATION
     Dosage: 200 MG, 1X/DAY
     Route: 048
     Dates: start: 2015, end: 20190525
  2. WARFARIN [Concomitant]
     Active Substance: WARFARIN
     Dosage: UNK (DEPENDENT ON INTERNATIONAL NORMALIZED RATIO (INR))
  3. CANDESARTAN. [Concomitant]
     Active Substance: CANDESARTAN
     Dosage: 8 MG, 1X/DAY
     Route: 048
  4. ATORVASTATIN [Concomitant]
     Active Substance: ATORVASTATIN
     Dosage: 40 MG, 1X/DAY
     Route: 048
  5. SERTRALINE [Concomitant]
     Active Substance: SERTRALINE HYDROCHLORIDE
     Dosage: 100 MG, 1X/DAY
     Route: 048
  6. FUROSEMIDE. [Concomitant]
     Active Substance: FUROSEMIDE
     Dosage: 20 MG, 1X/DAY
     Route: 048
  7. BISOPROLOL [Concomitant]
     Active Substance: BISOPROLOL
     Dosage: 2.5 MG, 1X/DAY
     Route: 048

REACTIONS (7)
  - Pneumonia [Fatal]
  - Treatment failure [Fatal]
  - Somnolence [Fatal]
  - Abnormal loss of weight [Fatal]
  - Decreased appetite [Fatal]
  - Diarrhoea [Fatal]
  - Thyrotoxic crisis [Fatal]

NARRATIVE: CASE EVENT DATE: 20190528
